FAERS Safety Report 8859955 (Version 2)
Quarter: 2012Q4

REPORT INFORMATION
  Report Type: Report from Study
  Country: JP (occurrence: JP)
  Receive Date: 20121025
  Receipt Date: 20121109
  Transmission Date: 20130627
  Serious: Yes (Death)
  Sender: FDA-Public Use
  Company Number: JP-SANOFI-AVENTIS-2012SA077768

PATIENT
  Age: 66 Year
  Sex: Male

DRUGS (6)
  1. TAXOTERE [Suspect]
     Indication: SQUAMOUS CELL CARCINOMA OF LUNG
     Route: 042
     Dates: start: 20120621, end: 20120621
  2. TAXOTERE [Suspect]
     Indication: SQUAMOUS CELL CARCINOMA OF LUNG
     Route: 042
     Dates: start: 20120713, end: 20120713
  3. TAXOTERE [Suspect]
     Indication: SQUAMOUS CELL CARCINOMA OF LUNG
     Route: 042
     Dates: start: 20120803, end: 20120803
  4. NEDAPLATIN [Suspect]
     Indication: SQUAMOUS CELL CARCINOMA OF LUNG
     Route: 042
     Dates: start: 20120621, end: 20120621
  5. NEDAPLATIN [Suspect]
     Indication: SQUAMOUS CELL CARCINOMA OF LUNG
     Route: 042
     Dates: start: 20120713, end: 20120713
  6. NEDAPLATIN [Suspect]
     Indication: SQUAMOUS CELL CARCINOMA OF LUNG
     Route: 042
     Dates: start: 20120803, end: 20120803

REACTIONS (4)
  - Pneumonitis [Fatal]
  - Dyspnoea [Fatal]
  - Cough [Fatal]
  - Blood lactate dehydrogenase increased [Fatal]
